FAERS Safety Report 9337181 (Version 3)
Quarter: 2013Q4

REPORT INFORMATION
  Report Type: Spontaneous
  Country: IL (occurrence: IL)
  Receive Date: 20130607
  Receipt Date: 20131125
  Transmission Date: 20140711
  Serious: Yes (Life-Threatening, Hospitalization)
  Sender: FDA-Public Use
  Company Number: IL-GLAXOSMITHKLINE-B0897637A

PATIENT
  Age: 31 Year
  Sex: Female

DRUGS (4)
  1. BENLYSTA [Suspect]
     Indication: SYSTEMIC LUPUS ERYTHEMATOSUS
     Route: 065
     Dates: start: 20130418
  2. CHLOROQUIN [Concomitant]
     Route: 065
  3. PREDNISONE [Concomitant]
     Dosage: 20MG UNKNOWN
     Route: 048
  4. PLAQUENIL [Concomitant]
     Route: 065

REACTIONS (8)
  - Pneumonia pneumococcal [Recovered/Resolved]
  - Respiratory failure [Recovering/Resolving]
  - Palpitations [Recovering/Resolving]
  - Dyspnoea [Recovering/Resolving]
  - Pyrexia [Recovering/Resolving]
  - Lymphadenopathy [Recovering/Resolving]
  - Transverse sinus thrombosis [Unknown]
  - Headache [Unknown]
